FAERS Safety Report 8828129 (Version 1)
Quarter: 2012Q4

REPORT INFORMATION
  Report Type: 
  Country: BR (occurrence: BR)
  Receive Date: 20121008
  Receipt Date: 20121008
  Transmission Date: 20130627
  Serious: Yes (Other)
  Sender: FDA-Public Use
  Company Number: PHHY2012BR043959

PATIENT
  Age: 14 Year
  Sex: Male
  Weight: 54 kg

DRUGS (2)
  1. TRILEPTAL [Suspect]
     Indication: CONVULSION
     Dosage: Half tablet in the morning and one tablet at night
     Route: 048
     Dates: start: 200702
  2. TRAVATAN [Concomitant]
     Indication: INTRAOCULAR PRESSURE TEST ABNORMAL
     Dosage: 1 drp, a day

REACTIONS (11)
  - Corneal deposits [Not Recovered/Not Resolved]
  - Hip fracture [Recovering/Resolving]
  - Restlessness [Not Recovered/Not Resolved]
  - Muscle spasms [Not Recovered/Not Resolved]
  - Syncope [Recovered/Resolved]
  - Irritability [Not Recovered/Not Resolved]
  - Excessive eye blinking [Not Recovered/Not Resolved]
  - Convulsion [Unknown]
  - Agitation [Not Recovered/Not Resolved]
  - Nausea [Not Recovered/Not Resolved]
  - Drug administration error [Not Recovered/Not Resolved]
